FAERS Safety Report 4943968-7 (Version None)
Quarter: 2006Q1

REPORT INFORMATION
  Report Type: 
  Country: None (occurrence: None)
  Receive Date: 20060313
  Receipt Date: 20060313
  Transmission Date: 20060701
  Serious: Yes (Death)
  Sender: FDA-Public Use
  Company Number: None

PATIENT
  Age: 88 Year
  Sex: Female
  Weight: 67.1324 kg

DRUGS (2)
  1. DOLASETRON 100 MG /5ML AVENTIS [Suspect]
     Indication: POST PROCEDURAL NAUSEA
     Dosage: 1000 MG Q8H IV 1 DOSE
     Route: 042
  2. DOLASETRON 100 MG /5ML AVENTIS [Suspect]
     Indication: POST PROCEDURAL VOMITING
     Dosage: 1000 MG Q8H IV 1 DOSE
     Route: 042

REACTIONS (5)
  - CARDIO-RESPIRATORY ARREST [None]
  - DRUG PRESCRIBING ERROR [None]
  - LOSS OF CONSCIOUSNESS [None]
  - MEDICATION ERROR [None]
  - WRONG DRUG ADMINISTERED [None]
